FAERS Safety Report 21110436 (Version 1)
Quarter: 2022Q3

REPORT INFORMATION
  Report Type: Spontaneous
  Country: IT (occurrence: IT)
  Receive Date: 20220721
  Receipt Date: 20220721
  Transmission Date: 20221027
  Serious: Yes (Hospitalization)
  Sender: FDA-Public Use
  Company Number: None

PATIENT
  Age: 35 Year
  Sex: Female
  Weight: 41 kg

DRUGS (1)
  1. ACETAMINOPHEN [Suspect]
     Active Substance: ACETAMINOPHEN
     Indication: Product used for unknown indication
     Dosage: 10 G (10 G TOTALI) (INTOSSICAZIONE PER AUTOLESIONISMO (IL SEGNALATORE CONFERMA CHE NON CI SONO STATI
     Route: 048
     Dates: start: 20220615

REACTIONS (2)
  - Analgesic drug level increased [Recovering/Resolving]
  - Intentional self-injury [Recovering/Resolving]
